FAERS Safety Report 18864996 (Version 1)
Quarter: 2021Q1

REPORT INFORMATION
  Report Type: Spontaneous
  Country: CA (occurrence: CA)
  Receive Date: 20210208
  Receipt Date: 20210208
  Transmission Date: 20210420
  Serious: Yes (Hospitalization)
  Sender: FDA-Public Use
  Company Number: CA-JACOBUS PHARMACEUTICAL COMPANY, INC.-2106480

PATIENT
  Age: 57 Year
  Sex: Male

DRUGS (7)
  1. AMLODIPINE [Concomitant]
     Active Substance: AMLODIPINE BESYLATE
  2. CYCLOPHOSPHAMIDE. [Concomitant]
     Active Substance: CYCLOPHOSPHAMIDE
  3. LEVOTHYROXINE. [Concomitant]
     Active Substance: LEVOTHYROXINE
  4. PANTOPRAZOLE SODIUM. [Concomitant]
     Active Substance: PANTOPRAZOLE SODIUM
  5. PREDNISONE. [Concomitant]
     Active Substance: PREDNISONE
  6. SULFATRIM [Concomitant]
     Active Substance: SULFAMETHOXAZOLE\TRIMETHOPRIM
  7. DAPSONE. [Suspect]
     Active Substance: DAPSONE
     Route: 065

REACTIONS (14)
  - Liver function test increased [Unknown]
  - Vomiting [Unknown]
  - Drug-induced liver injury [Unknown]
  - Haemoglobin abnormal [Unknown]
  - Nausea [Unknown]
  - Pyrexia [Unknown]
  - Congenital syphilitic osteochondritis [Unknown]
  - White blood cell count abnormal [Unknown]
  - Alanine aminotransferase increased [Unknown]
  - Pancytopenia [Unknown]
  - Leukopenia [Unknown]
  - Neutrophil count abnormal [Unknown]
  - Platelet count abnormal [Unknown]
  - Neutropenia [Unknown]

NARRATIVE: CASE EVENT DATE: 20200731
